FAERS Safety Report 6900269-5 (Version None)
Quarter: 2010Q3

REPORT INFORMATION
  Report Type: 
  Country: None (occurrence: None)
  Receive Date: 20100803
  Receipt Date: 20100729
  Transmission Date: 20110219
  Serious: Yes (Disabling)
  Sender: FDA-Public Use
  Company Number: GB-ROCHE-718168

PATIENT
  Age: 45 Year
  Sex: Male

DRUGS (2)
  1. CAPECITABINE [Suspect]
     Dosage: INDICATION:(DUKE'S C).
     Route: 065
     Dates: start: 20100624
  2. OXALIPLATIN [Suspect]
     Dosage: DOSE FORM:INFUSION. THERAPY STOPPED.
     Route: 065
     Dates: start: 20100624

REACTIONS (4)
  - BLINDNESS [None]
  - DYSAESTHESIA [None]
  - LARYNGOSPASM [None]
  - MUSCLE SPASMS [None]
